FAERS Safety Report 8380560-9 (Version None)
Quarter: 2012Q2

REPORT INFORMATION
  Report Type: 
  Country: None (occurrence: None)
  Receive Date: 20120515
  Receipt Date: 20120503
  Transmission Date: 20120825
  Serious: Yes (Other)
  Sender: FDA-Public Use
  Company Number: 2012032223

PATIENT
  Sex: Female

DRUGS (7)
  1. KALBITOR [Suspect]
     Indication: HEREDITARY ANGIOEDEMA
     Dosage: 30 MG X1, SUBCUTANEOUS
     Route: 058
     Dates: start: 20090101
  2. BERINERT [Suspect]
     Indication: HEREDITARY ANGIOEDEMA
  3. PROMETRIUM [Concomitant]
  4. METFORMIN HCL [Suspect]
     Indication: POLYCYSTIC OVARIES
     Dosage: 1000 MG, BID, (500 MG, BID)
     Dates: start: 20120101, end: 20120101
  5. METFORMIN HCL [Suspect]
     Indication: POLYCYSTIC OVARIES
     Dosage: 1000 MG, BID, (500 MG, BID)
     Dates: start: 20120101
  6. CLOMID [Concomitant]
  7. THYROID TAB [Concomitant]

REACTIONS (4)
  - INCORRECT DOSE ADMINISTERED [None]
  - DRUG DISPENSING ERROR [None]
  - MATERNAL EXPOSURE DURING PREGNANCY [None]
  - ABORTION SPONTANEOUS [None]
